FAERS Safety Report 18874899 (Version 1)
Quarter: 2021Q1

REPORT INFORMATION
  Report Type: Spontaneous
  Country: DE (occurrence: DE)
  Receive Date: 20210211
  Receipt Date: 20210211
  Transmission Date: 20210420
  Serious: Yes (Hospitalization, Other)
  Sender: FDA-Public Use
  Company Number: DE-SUN PHARMACEUTICAL INDUSTRIES LTD-2021RR-280344

PATIENT
  Age: 46 Year
  Sex: Female
  Weight: 50 kg

DRUGS (11)
  1. SPASCUPREELSPASCUPREEL [Concomitant]
     Indication: DETOXIFICATION
     Dosage: 1.1 MILLILITER, DAILY, SINGLE DOSE
     Route: 042
     Dates: start: 20200111, end: 20200111
  2. FOLIC ACID. [Concomitant]
     Active Substance: FOLIC ACID
     Indication: NEUROPATHY PERIPHERAL
     Dosage: 5 MILLIGRAM, DAILY, SINGLE DOSE, EXACT DOSE UNKNOWN
     Route: 042
     Dates: start: 20200111, end: 20200111
  3. GASTRO?LOGES INJEKTIONGASTRO?LOGESINJEKTION [Concomitant]
     Indication: DETOXIFICATION
     Dosage: 2 MILLILITER, DAILY, SINGLE DOSE
     Route: 042
     Dates: start: 20200111, end: 20200111
  4. INFIDYS INJECTIONINFIDYSINJECTION [Concomitant]
     Indication: DETOXIFICATION
     Dosage: 2.5 MILLILITER, DAILY, SINGLE DOSE
     Route: 042
     Dates: start: 20200111, end: 20200111
  5. CIPROFLOXACIN. [Suspect]
     Active Substance: CIPROFLOXACIN
     Indication: BACTERIAL INFECTION
     Dosage: 500 MILLIGRAM, DAILY
     Route: 048
     Dates: start: 20191213, end: 20191223
  6. GASTROLUX?CT (DIATRIZOATE SODIUM\ LYSINE AMIDOTRIZOATE) [Suspect]
     Active Substance: DIATRIZOATE SODIUM\ LYSINE AMIDOTRIZOATE
     Indication: DIAGNOSTIC PROCEDURE
     Dosage: SINGLE DOSE
     Route: 048
     Dates: start: 20200624, end: 20200624
  7. PROHANCE [Suspect]
     Active Substance: GADOTERIDOL
     Indication: DIAGNOSTIC PROCEDURE
     Dosage: SINGLE DOSE
     Route: 042
     Dates: start: 20200118, end: 20200118
  8. DYSTO?LOGES N INJEKTIONSLOSUNGDYSTO?LOGESINJEKTIONSLOSUNG [Concomitant]
     Indication: DETOXIFICATION
     Dosage: 2 MILLILITER, DAILY, SINGLE DOSE
     Route: 042
     Dates: start: 20200111, end: 20200111
  9. VITAMIN B12 FORTE CYANOCOBALAMIN HEVERTVITAMIN B12 FORTE CYANOCOBAL... [Concomitant]
     Indication: NEUROPATHY PERIPHERAL
     Dosage: 2 MILLILITER, DAILY, SINGLE DOSE
     Route: 042
     Dates: start: 20200111, end: 20200111
  10. PANTOPRAZOLE ? TABLET [Concomitant]
     Indication: PRODUCT USED FOR UNKNOWN INDICATION
     Dosage: UNK
     Route: 065
  11. PASCORBIN INJEKTIONSLOSUNGPASCORBININJEKTIONSLOSUNG [Concomitant]
     Indication: DETOXIFICATION
     Dosage: 2.5 MILLILITER, DAILY, SINGLE DOSE
     Route: 042
     Dates: start: 20200111, end: 20200111

REACTIONS (22)
  - Rash [Recovered/Resolved]
  - Dysphagia [Not Recovered/Not Resolved]
  - Disturbance in attention [Not Recovered/Not Resolved]
  - Transaminases increased [Recovered/Resolved]
  - Dry mouth [Not Recovered/Not Resolved]
  - Muscle twitching [Not Recovered/Not Resolved]
  - Hyperaesthesia [Not Recovered/Not Resolved]
  - Feeling cold [Not Recovered/Not Resolved]
  - Ageusia [Not Recovered/Not Resolved]
  - Somnolence [Not Recovered/Not Resolved]
  - Hypoaesthesia [Not Recovered/Not Resolved]
  - Diarrhoea [Recovered/Resolved]
  - Dizziness [Recovered/Resolved]
  - Tachycardia [Not Recovered/Not Resolved]
  - Neck pain [Recovered/Resolved]
  - Dry mouth [Not Recovered/Not Resolved]
  - Myalgia [Not Recovered/Not Resolved]
  - Insomnia [Not Recovered/Not Resolved]
  - Hypoaesthesia [Not Recovered/Not Resolved]
  - Muscle spasticity [Not Recovered/Not Resolved]
  - Paraesthesia [Not Recovered/Not Resolved]
  - Oropharyngeal pain [Not Recovered/Not Resolved]

NARRATIVE: CASE EVENT DATE: 20191231
